FAERS Safety Report 17356400 (Version 1)
Quarter: 2020Q1

REPORT INFORMATION
  Report Type: Other
  Country: US (occurrence: US)
  Receive Date: 20200131
  Receipt Date: 20200131
  Transmission Date: 20200409
  Serious: No
  Sender: FDA-Public Use
  Company Number: US-AMAG PHARMACEUTICALS, INC.-AMAG202000201

PATIENT
  Sex: Female

DRUGS (2)
  1. VYLEESI [Suspect]
     Active Substance: BREMELANOTIDE ACETATE
     Indication: LIBIDO DECREASED
  2. VYLEESI [Suspect]
     Active Substance: BREMELANOTIDE ACETATE
     Indication: LIBIDO DECREASED
     Dosage: UNK
     Route: 058

REACTIONS (1)
  - Drug ineffective [Unknown]
